FAERS Safety Report 13837733 (Version 2)
Quarter: 2017Q4

REPORT INFORMATION
  Report Type: Report from Study
  Country: JP (occurrence: JP)
  Receive Date: 20170806
  Receipt Date: 20171020
  Transmission Date: 20180320
  Serious: Yes (Death, Hospitalization, Other)
  Sender: FDA-Public Use
  Company Number: JP-AMGEN-JPNCT2017118969

PATIENT
  Age: 24 Year
  Sex: Male
  Weight: 54 kg

DRUGS (42)
  1. VICCLOX [Concomitant]
     Active Substance: ACYCLOVIR SODIUM
     Indication: PROPHYLAXIS
     Dosage: UNK
     Route: 041
  2. SOSEGON [Concomitant]
     Active Substance: PENTAZOCINE
     Indication: CYSTITIS HAEMORRHAGIC
     Dosage: UNK
     Route: 065
  3. ACELIO [Concomitant]
     Active Substance: ACETAMINOPHEN
     Indication: CYSTITIS HAEMORRHAGIC
     Dosage: UNK
     Route: 042
  4. OXIFAST [Concomitant]
     Active Substance: OXYCODONE
     Indication: CYSTITIS HAEMORRHAGIC
     Dosage: UNK
     Route: 065
  5. VALIXA [Concomitant]
     Active Substance: VALGANCICLOVIR
     Indication: CYTOMEGALOVIRUS VIRAEMIA
     Dosage: UNK
     Route: 048
  6. ITRIZOLE [Concomitant]
     Active Substance: ITRACONAZOLE
     Indication: PROPHYLAXIS
     Dosage: UNK
     Route: 048
  7. ONCOVIN [Concomitant]
     Active Substance: VINCRISTINE SULFATE
     Indication: DIFFUSE LARGE B-CELL LYMPHOMA
  8. PREDONINE [Concomitant]
     Active Substance: PREDNISOLONE
     Indication: PROPHYLAXIS
  9. FENTANYL. [Concomitant]
     Active Substance: FENTANYL
     Indication: CYSTITIS HAEMORRHAGIC
     Dosage: UNK
     Route: 065
  10. ZOSYN [Concomitant]
     Active Substance: PIPERACILLIN SODIUM\TAZOBACTAM SODIUM
     Indication: PROPHYLAXIS
     Dosage: UNK
     Route: 042
  11. ONCOVIN [Concomitant]
     Active Substance: VINCRISTINE SULFATE
     Indication: IMMUNE THROMBOCYTOPENIC PURPURA
     Dosage: 2 MG, UNK
     Route: 042
     Dates: start: 20160301
  12. PREDONINE [Concomitant]
     Active Substance: PREDNISOLONE
     Indication: GRAFT VERSUS HOST DISEASE
     Dosage: UNK
     Route: 065
  13. URSODEOXYCHOLIC ACID [Concomitant]
     Active Substance: URSODIOL
     Indication: PROPHYLAXIS
     Dosage: UNK
     Route: 048
  14. TRANEXAMIC ACID. [Concomitant]
     Active Substance: TRANEXAMIC ACID
     Indication: CYSTITIS HAEMORRHAGIC
     Dosage: UNK
     Route: 048
  15. SPIRONOLACTONE. [Concomitant]
     Active Substance: SPIRONOLACTONE
     Indication: CYSTITIS HAEMORRHAGIC
     Dosage: UNK
     Route: 048
  16. FILGRASTIM BS [Concomitant]
     Active Substance: FILGRASTIM
     Dosage: 300 MUG, UNK
     Route: 065
     Dates: start: 20160112, end: 20160120
  17. FILGRASTIM BS [Concomitant]
     Active Substance: FILGRASTIM
     Dosage: 150 MUG, UNK
     Route: 065
     Dates: start: 20160222, end: 20160223
  18. SERENACE [Concomitant]
     Active Substance: HALOPERIDOL
     Indication: CYSTITIS HAEMORRHAGIC
     Dosage: UNK
     Route: 065
  19. PROGRAF [Concomitant]
     Active Substance: TACROLIMUS\TACROLIMUS ANHYDROUS
     Indication: PROPHYLAXIS
  20. OMEPRAZOLE. [Concomitant]
     Active Substance: OMEPRAZOLE
     Indication: PROPHYLAXIS
     Dosage: UNK
     Route: 042
  21. TEICOPLANIN [Concomitant]
     Active Substance: TEICOPLANIN
     Indication: PROPHYLAXIS
     Dosage: UNK
     Route: 041
  22. ATARAX-P [Concomitant]
     Active Substance: HYDROXYZINE HYDROCHLORIDE
     Dosage: UNK
     Route: 065
  23. LEVOFLOXACIN HEMIHYDRATE [Concomitant]
     Active Substance: LEVOFLOXACIN
     Indication: PROPHYLAXIS
     Dosage: UNK
     Route: 048
  24. FILGRASTIM BS [Concomitant]
     Active Substance: FILGRASTIM
     Dosage: 75 MUG, UNK
     Route: 065
     Dates: start: 20160204, end: 20160204
  25. PROGRAF [Concomitant]
     Active Substance: TACROLIMUS\TACROLIMUS ANHYDROUS
     Indication: GRAFT VERSUS HOST DISEASE
     Dosage: UNK
     Route: 065
  26. MAGMITT [Concomitant]
     Active Substance: MAGNESIUM OXIDE
     Indication: PROPHYLAXIS
     Dosage: UNK
     Route: 048
  27. CALFINA [Concomitant]
     Active Substance: ALFACALCIDOL
     Indication: PROPHYLAXIS
     Dosage: UNK
     Route: 048
  28. FUROSEMIDE. [Concomitant]
     Active Substance: FUROSEMIDE
     Indication: CYSTITIS HAEMORRHAGIC
     Dosage: UNK
     Route: 048
  29. FILGRASTIM BS [Concomitant]
     Active Substance: FILGRASTIM
     Indication: IMMUNE THROMBOCYTOPENIC PURPURA
     Dosage: 150 MUG, UNK
     Route: 065
     Dates: start: 20160106, end: 20160111
  30. FILGRASTIM BS [Concomitant]
     Active Substance: FILGRASTIM
     Dosage: 75 MUG, UNK
     Route: 065
     Dates: start: 20160129, end: 20160129
  31. FUNGUARD [Concomitant]
     Active Substance: MICAFUNGIN SODIUM
     Indication: PROPHYLAXIS
     Dosage: UNK
     Route: 041
  32. BIOFERMIN R [Concomitant]
     Active Substance: BACILLUS SUBTILIS\LACTOBACILLUS ACIDOPHILUS\STREPTOCOCCUS FAECAIS
     Indication: CLOSTRIDIUM DIFFICILE COLITIS
     Dosage: UNK
     Route: 048
  33. CALONAL [Concomitant]
     Active Substance: ACETAMINOPHEN
     Indication: CYSTITIS HAEMORRHAGIC
     Dosage: UNK
     Route: 048
  34. NICARDIPINE HYDROCHLORIDE. [Concomitant]
     Active Substance: NICARDIPINE HYDROCHLORIDE
     Indication: PROPHYLAXIS
     Dosage: UNK
     Route: 042
  35. AMLODIPINE [Concomitant]
     Active Substance: AMLODIPINE BESYLATE
     Indication: CYSTITIS HAEMORRHAGIC
     Dosage: UNK
     Route: 048
  36. ASPARA POTASSIUM [Concomitant]
     Active Substance: POTASSIUM ASPARTATE
     Indication: HYPOKALAEMIA
     Dosage: UNK
     Route: 048
  37. LASIX [Concomitant]
     Active Substance: FUROSEMIDE
     Indication: CYSTITIS HAEMORRHAGIC
     Dosage: UNK
     Route: 065
  38. ROMIPLOSTIM [Suspect]
     Active Substance: ROMIPLOSTIM
     Indication: IMMUNE THROMBOCYTOPENIC PURPURA
     Dosage: 100 MUG, UNK
     Route: 058
     Dates: start: 20160113
  39. FILGRASTIM BS [Concomitant]
     Active Substance: FILGRASTIM
     Dosage: 300 MUG, UNK
     Route: 065
     Dates: start: 20160224, end: 20160228
  40. CEFEPIME DIHYDROCHLORIDE [Concomitant]
     Active Substance: CEFEPIME HYDROCHLORIDE
     Indication: PROPHYLAXIS
     Dosage: UNK
     Route: 042
  41. ATARAX-P [Concomitant]
     Active Substance: HYDROXYZINE HYDROCHLORIDE
     Indication: CYSTITIS HAEMORRHAGIC
     Dosage: UNK
     Route: 065
  42. XYLOCAINE [Concomitant]
     Active Substance: LIDOCAINE HYDROCHLORIDE
     Indication: CYSTITIS HAEMORRHAGIC
     Dosage: UNK
     Route: 042

REACTIONS (6)
  - Pyrexia [Recovered/Resolved]
  - Oedema [Recovered/Resolved]
  - Renal impairment [Fatal]
  - Precursor B-lymphoblastic lymphoma recurrent [Fatal]
  - Off label use [Unknown]
  - Cystitis haemorrhagic [Fatal]

NARRATIVE: CASE EVENT DATE: 20160122
